FAERS Safety Report 5506012-9 (Version None)
Quarter: 2007Q4

REPORT INFORMATION
  Report Type: 
  Country: None (occurrence: None)
  Receive Date: 20071101
  Receipt Date: 20071101
  Transmission Date: 20080405
  Serious: Yes (Other)
  Sender: FDA-Public Use
  Company Number: None

PATIENT
  Sex: Female

DRUGS (8)
  1. REVLIMID [Suspect]
     Indication: MULTIPLE MYELOMA
     Dosage: 10MG DAILY X21D/28D PO
     Route: 048
     Dates: start: 20070705, end: 20070830
  2. REVLIMID [Suspect]
     Indication: MULTIPLE MYELOMA
     Dosage: 5MG ALTERNATE WITH 10MG QOD X21D/28D PO
     Route: 048
     Dates: start: 20070830, end: 20070926
  3. VICODIN [Concomitant]
  4. COZAAR [Concomitant]
  5. HYDROCHLOROTHIAZIDE [Concomitant]
  6. FLUOXETINE [Concomitant]
  7. ZOMETA [Concomitant]
  8. PROCRIT [Concomitant]

REACTIONS (5)
  - ANAEMIA [None]
  - LEUKOPENIA [None]
  - NEUROPATHY [None]
  - OEDEMA PERIPHERAL [None]
  - THROMBOCYTOPENIA [None]
